FAERS Safety Report 8435516-4 (Version None)
Quarter: 2012Q2

REPORT INFORMATION
  Report Type: 
  Country: None (occurrence: None)
  Receive Date: 20120614
  Receipt Date: 20120604
  Transmission Date: 20120825
  Serious: Yes (Hospitalization)
  Sender: FDA-Public Use
  Company Number: CA-EISAI INC-E7389-02417-CLI-CA

PATIENT
  Sex: Female
  Weight: 54 kg

DRUGS (4)
  1. EPIRUBICIN HYDROCHLORIDE [Suspect]
     Route: 041
     Dates: start: 20120509
  2. EPIRUBICIN HYDROCHLORIDE [Suspect]
     Route: 041
     Dates: start: 20120425, end: 20120505
  3. CLOBAZAM [Concomitant]
     Route: 048
  4. DILANTIN [Concomitant]
     Route: 048

REACTIONS (1)
  - PNEUMONIA [None]
